FAERS Safety Report 12541100 (Version 1)
Quarter: 2016Q3

REPORT INFORMATION
  Report Type: Report from Study
  Country: US (occurrence: US)
  Receive Date: 20160708
  Receipt Date: 20160708
  Transmission Date: 20161109
  Serious: No
  Sender: FDA-Public Use
  Company Number: US-CELGENEUS-USA-2016070724

PATIENT
  Age: 51 Year
  Sex: Female

DRUGS (6)
  1. IBUPROFEN. [Concomitant]
     Active Substance: IBUPROFEN
     Indication: PSORIATIC ARTHROPATHY
     Route: 065
  2. OTEZLA [Suspect]
     Active Substance: APREMILAST
     Indication: PSORIATIC ARTHROPATHY
     Route: 048
  3. DAYPRO [Concomitant]
     Active Substance: OXAPROZIN
     Indication: PSORIATIC ARTHROPATHY
     Route: 065
  4. FELDENE [Concomitant]
     Active Substance: PIROXICAM
     Indication: PSORIATIC ARTHROPATHY
     Route: 065
  5. CELEBREX [Concomitant]
     Active Substance: CELECOXIB
     Indication: PSORIATIC ARTHROPATHY
     Route: 065
  6. ANAPROX [Concomitant]
     Active Substance: NAPROXEN SODIUM
     Indication: PSORIATIC ARTHROPATHY
     Route: 065

REACTIONS (1)
  - Adverse drug reaction [Unknown]
